FAERS Safety Report 8307019 (Version 3)
Quarter: 2015Q4

REPORT INFORMATION
  Report Type: Spontaneous
  Country: US (occurrence: US)
  Receive Date: 20111222
  Receipt Date: 20151124
  Transmission Date: 20160305
  Serious: Yes (Hospitalization, Other)
  Sender: FDA-Public Use
  Company Number: US-BAYER-2011-121004

PATIENT
  Age: 19 Year
  Sex: Female
  Weight: 63.49 kg

DRUGS (6)
  1. NIFEDIPINE. [Concomitant]
     Active Substance: NIFEDIPINE
  2. CEFTIN [Concomitant]
     Active Substance: CEFUROXIME AXETIL
     Indication: SINUSITIS
     Dosage: 250 MG, BID
     Dates: start: 20091102
  3. YAZ [Suspect]
     Active Substance: DROSPIRENONE\ETHINYL ESTRADIOL
     Indication: PREMENSTRUAL SYNDROME
  4. YAZ [Suspect]
     Active Substance: DROSPIRENONE\ETHINYL ESTRADIOL
     Indication: ACNE
     Dosage: UNK
     Dates: start: 200811, end: 201001
  5. NASONEX [Concomitant]
     Active Substance: MOMETASONE FUROATE
     Dosage: UNK
     Dates: start: 20100105, end: 20100407
  6. LORTAB [Concomitant]
     Active Substance: ACETAMINOPHEN\HYDROCODONE BITARTRATE
     Indication: HEADACHE
     Dosage: UNK
     Dates: start: 20091102

REACTIONS (8)
  - Vasospasm [None]
  - Anhedonia [None]
  - General physical health deterioration [None]
  - Arterial spasm [None]
  - Pain [None]
  - Embolism arterial [None]
  - Peripheral embolism [None]
  - Anxiety [None]

NARRATIVE: CASE EVENT DATE: 20100114
